FAERS Safety Report 5667297-1 (Version None)
Quarter: 2008Q1

REPORT INFORMATION
  Report Type: 
  Country: None (occurrence: None)
  Receive Date: 20080315
  Receipt Date: 20080115
  Transmission Date: 20080703
  Serious: No
  Sender: FDA-Public Use
  Company Number: US-ABBOTT-08P-163-0433991-00

PATIENT
  Sex: Female
  Weight: 83.082 kg

DRUGS (11)
  1. HUMIRA [Suspect]
     Indication: RHEUMATOID ARTHRITIS
     Route: 058
     Dates: start: 20080114
  2. LEFLUNOMIDE [Concomitant]
     Indication: RHEUMATOID ARTHRITIS
     Route: 048
  3. HYDROXYCHLOROQUINE PHOSPHATE [Concomitant]
     Indication: RHEUMATOID ARTHRITIS
     Route: 048
  4. CELECOXIB [Concomitant]
     Indication: RHEUMATOID ARTHRITIS
     Route: 048
  5. FELODIPINE [Concomitant]
     Indication: HYPERTENSION
     Route: 048
  6. DILTIAZEM HYDROCHLORIDE [Concomitant]
     Indication: HYPERTENSION
     Route: 048
  7. IRBESARTAN [Concomitant]
     Indication: HYPERTENSION
     Route: 048
  8. TRAMADOL HCL [Concomitant]
     Indication: FIBROMYALGIA
     Route: 048
  9. PARACETAMOL [Concomitant]
     Indication: RHEUMATOID ARTHRITIS
     Route: 048
  10. PARACETAMOL [Concomitant]
     Indication: FIBROMYALGIA
  11. MEDROXYPROGESTERONE [Concomitant]
     Indication: MENSTRUATION IRREGULAR
     Dates: start: 20080109, end: 20080115

REACTIONS (5)
  - DIARRHOEA [None]
  - NAUSEA [None]
  - PAIN [None]
  - PYREXIA [None]
  - VOMITING [None]
